FAERS Safety Report 14973968 (Version 1)
Quarter: 2018Q2

REPORT INFORMATION
  Report Type: Spontaneous
  Country: US (occurrence: US)
  Receive Date: 20180605
  Receipt Date: 20180605
  Transmission Date: 20180711
  Serious: Yes (Other)
  Sender: FDA-Public Use
  Company Number: US-SA-2017SA254989

PATIENT
  Age: 57 Year
  Sex: Female
  Weight: 99.77 kg

DRUGS (13)
  1. TAXOTERE [Suspect]
     Active Substance: DOCETAXEL
     Indication: BREAST CANCER FEMALE
     Dosage: 160 MG,Q3W
     Route: 042
     Dates: start: 20050620, end: 20050620
  2. ADRIAMYCIN [DOXORUBICIN] [Concomitant]
     Indication: CHEMOTHERAPY
  3. PREVACID [Concomitant]
     Active Substance: LANSOPRAZOLE
     Dosage: UNK
     Dates: start: 1997, end: 1999
  4. CYTOXAN [Concomitant]
     Active Substance: CYCLOPHOSPHAMIDE
     Dosage: UNK
  5. MIRALAX [Concomitant]
     Active Substance: POLYETHYLENE GLYCOL 3350
     Dosage: UNK
     Dates: start: 199901, end: 199902
  6. ALBUTEROL [SALBUTAMOL] [Concomitant]
     Dosage: UNK
     Dates: start: 2005, end: 2015
  7. LACTULOSE. [Concomitant]
     Active Substance: LACTULOSE
     Dosage: UNK
     Dates: start: 1999, end: 1999
  8. PREDNISONE. [Concomitant]
     Active Substance: PREDNISONE
     Dosage: UNK
     Dates: start: 2000, end: 2000
  9. TAXOTERE [Suspect]
     Active Substance: DOCETAXEL
     Dosage: 160 MG,Q3W
     Route: 042
     Dates: start: 20050829, end: 20050829
  10. CYTOXAN [Concomitant]
     Active Substance: CYCLOPHOSPHAMIDE
  11. ELLENCE [Concomitant]
     Active Substance: EPIRUBICIN HYDROCHLORIDE
  12. NEOSAR [Concomitant]
     Active Substance: CYCLOPHOSPHAMIDE
     Indication: CHEMOTHERAPY
  13. 5-FLUOROURACIL [FLUOROURACIL] [Concomitant]

REACTIONS (2)
  - Alopecia [Recovering/Resolving]
  - Psychological trauma [Unknown]

NARRATIVE: CASE EVENT DATE: 200506
